FAERS Safety Report 9915135 (Version 1)
Quarter: 2014Q1

REPORT INFORMATION
  Report Type: Spontaneous
  Country: MX (occurrence: MX)
  Receive Date: 20140220
  Receipt Date: 20140220
  Transmission Date: 20141002
  Serious: Yes (Hospitalization)
  Sender: FDA-Public Use
  Company Number: MX-ELI_LILLY_AND_COMPANY-MX201402005216

PATIENT
  Sex: Female

DRUGS (3)
  1. HUMALOG 50% LISPRO, 50% NPL [Suspect]
     Indication: PRODUCT USED FOR UNKNOWN INDICATION
     Dosage: 15 IU, EACH MORNING
     Route: 065
  2. HUMALOG 50% LISPRO, 50% NPL [Suspect]
     Dosage: 20 IU, EACH EVENING
     Route: 065
  3. COMPETACT [Concomitant]
     Dosage: UNK, QD
     Route: 065

REACTIONS (1)
  - Urinary tract infection [Unknown]
